FAERS Safety Report 4532050-9 (Version None)
Quarter: 2004Q4

REPORT INFORMATION
  Report Type: 
  Country: None (occurrence: None)
  Receive Date: 20041220
  Receipt Date: 20041213
  Transmission Date: 20050328
  Serious: Yes (Other)
  Sender: FDA-Public Use
  Company Number: FR-GLAXOSMITHKLINE-B0362053A

PATIENT
  Age: 31 Year
  Sex: Female

DRUGS (3)
  1. IMIJECT [Suspect]
     Indication: ANGIOPATHY
     Dosage: 6MG SEE DOSAGE TEXT
     Route: 058
     Dates: start: 20041001
  2. EPITOMAX [Concomitant]
     Indication: ANGIOPATHY
     Route: 048
     Dates: start: 20041201
  3. OXYGENE [Concomitant]
     Indication: ANGIOPATHY
     Dates: start: 20041001

REACTIONS (2)
  - DRUG DEPENDENCE [None]
  - INTENTIONAL OVERDOSE [None]
